FAERS Safety Report 9209186 (Version 1)
Quarter: 2013Q2

REPORT INFORMATION
  Report Type: Spontaneous
  Country: MX (occurrence: MX)
  Receive Date: 20130404
  Receipt Date: 20130404
  Transmission Date: 20140414
  Serious: Yes (Other)
  Sender: FDA-Public Use
  Company Number: PHHY2013MX032062

PATIENT
  Age: 61 Year
  Sex: Male

DRUGS (3)
  1. ONBREZ [Suspect]
     Indication: CHRONIC OBSTRUCTIVE PULMONARY DISEASE
     Dosage: 150 UG, UNK
  2. INDERAL [Concomitant]
  3. CARAFATE [Concomitant]

REACTIONS (1)
  - Oesophageal varices haemorrhage [Not Recovered/Not Resolved]
